FAERS Safety Report 21621375 (Version 1)
Quarter: 2022Q4

REPORT INFORMATION
  Report Type: Spontaneous
  Country: RU (occurrence: RU)
  Receive Date: 20221121
  Receipt Date: 20221121
  Transmission Date: 20230113
  Serious: Yes (Other)
  Sender: FDA-Public Use
  Company Number: None

PATIENT
  Sex: Male

DRUGS (4)
  1. KEPPRA [Suspect]
     Active Substance: LEVETIRACETAM
     Indication: Partial seizures
     Dosage: 450 MILLIGRAM, ONCE DAILY (QD)
     Route: 065
     Dates: start: 201504, end: 201507
  2. KEPPRA [Suspect]
     Active Substance: LEVETIRACETAM
     Dosage: 600 MILLIGRAM, ONCE DAILY (QD)
     Dates: start: 201507, end: 201903
  3. KEPPRA [Suspect]
     Active Substance: LEVETIRACETAM
     Dosage: 700 MILLIGRAM, ONCE DAILY (QD)
     Dates: start: 201903, end: 201904
  4. KEPPRA [Suspect]
     Active Substance: LEVETIRACETAM
     Dosage: 800 MILLIGRAM, ONCE DAILY (QD)
     Dates: start: 201904

REACTIONS (1)
  - Febrile convulsion [Unknown]

NARRATIVE: CASE EVENT DATE: 20190801
